FAERS Safety Report 19912791 (Version 1)
Quarter: 2021Q4

REPORT INFORMATION
  Report Type: Spontaneous
  Country: US (occurrence: US)
  Receive Date: 20211004
  Receipt Date: 20211004
  Transmission Date: 20220303
  Serious: No
  Sender: FDA-Public Use
  Company Number: 2021A735798

PATIENT
  Sex: Female
  Weight: 99.8 kg

DRUGS (2)
  1. BYDUREON BCISE [Suspect]
     Active Substance: EXENATIDE
     Indication: Type 1 diabetes mellitus
     Dosage: 2MG/ML ONCE A WEEK
     Route: 058
     Dates: start: 20210902
  2. BYDUREON BCISE [Suspect]
     Active Substance: EXENATIDE
     Indication: Insulin resistance
     Dosage: 2MG/ML ONCE A WEEK
     Route: 058
     Dates: start: 20210902

REACTIONS (4)
  - Injection site haemorrhage [Unknown]
  - Device leakage [Unknown]
  - Off label use [Unknown]
  - Device delivery system issue [Unknown]

NARRATIVE: CASE EVENT DATE: 20210902
